FAERS Safety Report 23277716 (Version 1)
Quarter: 2023Q4

REPORT INFORMATION
  Report Type: Spontaneous
  Country: US (occurrence: None)
  Receive Date: 20231207
  Receipt Date: 20231207
  Transmission Date: 20240109
  Serious: Yes (Life-Threatening, Other)
  Sender: FDA-Public Use
  Company Number: None

PATIENT
  Age: 12 Year
  Sex: Male
  Weight: 45.4 kg

DRUGS (1)
  1. FOSAPREPITANT [Suspect]
     Active Substance: FOSAPREPITANT
     Indication: Vomiting
     Dates: start: 20221109, end: 20221109

REACTIONS (9)
  - Circulatory collapse [None]
  - Cough [None]
  - Drooling [None]
  - Speech disorder [None]
  - Dyspnoea [None]
  - Eye swelling [None]
  - Lip swelling [None]
  - Rash erythematous [None]
  - Therapy cessation [None]

NARRATIVE: CASE EVENT DATE: 20221109
